FAERS Safety Report 7264414 (Version 4)
Quarter: 2013Q1

REPORT INFORMATION
  Report Type: Report from Study
  Country: US (occurrence: US)
  Receive Date: 20100130
  Receipt Date: 20130318
  Transmission Date: 20140127
  Serious: Yes (Hospitalization)
  Sender: FDA-Public Use
  Company Number: US-ABBOTT-09P-163-0606132-00

PATIENT
  Age: 54 None
  Sex: Female
  Weight: 104.42 kg

DRUGS (8)
  1. HUMIRA 40 MG/0.8 ML PEN [Suspect]
     Indication: RHEUMATOID ARTHRITIS
     Dates: start: 200910, end: 201210
  2. HUMIRA 40 MG/0.8 ML PEN [Suspect]
     Dates: start: 201302
  3. PERCOCET [Concomitant]
     Indication: PRODUCT USED FOR UNKNOWN INDICATION
  4. FLEXERIL [Concomitant]
     Indication: PAIN
  5. MORPHINE [Concomitant]
     Indication: PRODUCT USED FOR UNKNOWN INDICATION
     Route: 048
  6. METHOTREXATE [Concomitant]
     Indication: RHEUMATOID ARTHRITIS
     Route: 048
  7. ATENOLOL [Concomitant]
     Indication: HYPERTENSION
     Route: 048
  8. OXYCONTIN [Concomitant]
     Indication: PAIN

REACTIONS (15)
  - Fall [Recovered/Resolved]
  - Bone disorder [Recovered/Resolved]
  - Weight increased [Not Recovered/Not Resolved]
  - Abdominal distension [Unknown]
  - Blood pressure increased [Unknown]
  - Rash papular [Unknown]
  - Pain in extremity [Unknown]
  - Injection site bruising [Recovering/Resolving]
  - Dizziness [Recovering/Resolving]
  - Herpes simplex [Recovering/Resolving]
  - Aphthous stomatitis [Recovering/Resolving]
  - Psoriasis [Not Recovered/Not Resolved]
  - Back pain [Not Recovered/Not Resolved]
  - Drug ineffective [Not Recovered/Not Resolved]
  - Pain [Not Recovered/Not Resolved]
